FAERS Safety Report 25310776 (Version 1)
Quarter: 2025Q2

REPORT INFORMATION
  Report Type: Report from Study
  Country: CN (occurrence: CN)
  Receive Date: 20250514
  Receipt Date: 20250514
  Transmission Date: 20250717
  Serious: Yes (Other)
  Sender: ROCHE
  Company Number: CN-ROCHE-10000259090

PATIENT
  Age: 69 Year
  Sex: Male
  Weight: 69.7 kg

DRUGS (41)
  1. POLATUZUMAB VEDOTIN [Suspect]
     Active Substance: POLATUZUMAB VEDOTIN
     Indication: Diffuse large B-cell lymphoma
     Route: 042
     Dates: start: 20240106, end: 20240106
  2. POLATUZUMAB VEDOTIN [Suspect]
     Active Substance: POLATUZUMAB VEDOTIN
     Route: 042
     Dates: start: 20240403, end: 20240403
  3. ZANUBRUTINIB [Suspect]
     Active Substance: ZANUBRUTINIB
     Indication: Diffuse large B-cell lymphoma
     Route: 048
     Dates: start: 20240106, end: 20240205
  4. ZANUBRUTINIB [Suspect]
     Active Substance: ZANUBRUTINIB
     Route: 048
     Dates: start: 20240403, end: 20240513
  5. LENALIDOMIDE [Suspect]
     Active Substance: LENALIDOMIDE
     Indication: Diffuse large B-cell lymphoma
     Route: 048
     Dates: start: 20240106, end: 20240115
  6. LENALIDOMIDE [Suspect]
     Active Substance: LENALIDOMIDE
     Route: 048
     Dates: start: 20240403
  7. RITUXIMAB [Suspect]
     Active Substance: RITUXIMAB
     Indication: Diffuse large B-cell lymphoma
     Route: 042
     Dates: start: 20240105, end: 20240105
  8. RITUXIMAB [Suspect]
     Active Substance: RITUXIMAB
     Route: 042
     Dates: start: 20240402, end: 20240402
  9. LEUCOGEN [Concomitant]
     Active Substance: LEUCOGEN
     Route: 048
     Dates: start: 20240105
  10. CEFACLOR [Concomitant]
     Active Substance: CEFACLOR
     Route: 048
     Dates: start: 20240105
  11. CEFACLOR [Concomitant]
     Active Substance: CEFACLOR
     Route: 048
     Dates: start: 20240604, end: 20240604
  12. VALPROATE SODIUM [Concomitant]
     Active Substance: VALPROATE SODIUM
     Route: 048
     Dates: start: 202402
  13. LEVETIRACETAM [Concomitant]
     Active Substance: LEVETIRACETAM
     Route: 048
     Dates: start: 20240202
  14. Omeprazole enteric-coated capsules [Concomitant]
     Route: 048
     Dates: start: 20240301, end: 20240414
  15. Omeprazole enteric-coated capsules [Concomitant]
     Route: 048
     Dates: start: 20240513, end: 20240513
  16. Omeprazole enteric-coated capsules [Concomitant]
     Route: 042
     Dates: start: 20240526, end: 20240526
  17. PREDNISONE [Concomitant]
     Active Substance: PREDNISONE
     Dosage: DRUG DOSE FIRST ADMINISTERED IS 3 TABLET
     Route: 048
     Dates: start: 20240604, end: 20240604
  18. Acetylcysteine Solution for Inhalation [Concomitant]
     Route: 055
     Dates: start: 20240512, end: 20240606
  19. AMBROXOL HYDROCHLORIDE [Concomitant]
     Active Substance: AMBROXOL HYDROCHLORIDE
     Route: 042
     Dates: start: 20240512, end: 20240606
  20. CEFTAZIDIME [Concomitant]
     Active Substance: CEFTAZIDIME
     Route: 042
     Dates: start: 20240512, end: 20240606
  21. FLUCONAZOLE [Concomitant]
     Active Substance: FLUCONAZOLE
     Route: 042
     Dates: start: 20240512, end: 20240606
  22. TORSEMIDE [Concomitant]
     Active Substance: TORSEMIDE
     Indication: Polyuria
     Dates: start: 20240513, end: 20240606
  23. ACETAMINOPHEN [Concomitant]
     Active Substance: ACETAMINOPHEN
     Route: 048
     Dates: start: 20240513, end: 20240515
  24. ACETAMINOPHEN [Concomitant]
     Active Substance: ACETAMINOPHEN
     Route: 048
     Dates: start: 20240601, end: 20240605
  25. PROMETHAZINE [Concomitant]
     Active Substance: PROMETHAZINE HYDROCHLORIDE
     Route: 030
     Dates: start: 20240513, end: 20240515
  26. PROMETHAZINE [Concomitant]
     Active Substance: PROMETHAZINE HYDROCHLORIDE
     Route: 030
     Dates: start: 20240601, end: 20240605
  27. Ondansetron Hydrochloride Injection [Concomitant]
     Route: 048
     Dates: start: 20240531, end: 20240531
  28. Ondansetron Hydrochloride Injection [Concomitant]
     Route: 048
     Dates: start: 20240513, end: 20240515
  29. Vancomycin for injection [Concomitant]
     Route: 042
     Dates: start: 20240513, end: 20240606
  30. ACYCLOVIR SODIUM [Concomitant]
     Active Substance: ACYCLOVIR SODIUM
     Route: 048
     Dates: start: 20240513
  31. Mannitol injection [Concomitant]
     Indication: Oedema
     Route: 042
     Dates: start: 20240514, end: 20240606
  32. DEXAMETHASONE SODIUM PHOSPHATE [Concomitant]
     Active Substance: DEXAMETHASONE SODIUM PHOSPHATE
     Route: 042
     Dates: start: 20240514, end: 20240523
  33. OMEPRAZOLE [Concomitant]
     Active Substance: OMEPRAZOLE
     Route: 042
     Dates: start: 20240514, end: 20240523
  34. ALBUMIN HUMAN [Concomitant]
     Active Substance: ALBUMIN HUMAN
     Route: 042
     Dates: start: 20240529, end: 20240606
  35. METHYLPREDNISOLONE SODIUM SUCCINATE [Concomitant]
     Active Substance: METHYLPREDNISOLONE SODIUM SUCCINATE
     Route: 042
     Dates: start: 20240601, end: 20240604
  36. Potassium Chloride Sustained-release Tablets [Concomitant]
     Route: 048
     Dates: start: 20240531, end: 20240606
  37. Polyethylene glycol modified recombinant human granulocyte colony-stim [Concomitant]
     Route: 058
     Dates: start: 20240606, end: 20240606
  38. LIDOCAINE HYDROCHLORIDE [Concomitant]
     Active Substance: LIDOCAINE HYDROCHLORIDE
     Indication: Local anaesthesia
     Route: 058
     Dates: start: 20240515, end: 20240515
  39. ENEMA (SODIUM PHOSPHATE, DIBASIC\SODIUM PHOSPHATE, MONOBASIC) [Concomitant]
     Active Substance: SODIUM PHOSPHATE, DIBASIC\SODIUM PHOSPHATE, MONOBASIC
     Route: 050
     Dates: start: 20240516, end: 20240516
  40. Lactulose Oral Liquid [Concomitant]
     Route: 048
     Dates: start: 20240528, end: 20240528
  41. FLUCONAZOLE [Concomitant]
     Active Substance: FLUCONAZOLE
     Dosage: DRUG DOSE FIRST ADMINISTERED IS 3 TABLET
     Route: 048
     Dates: start: 20240605

REACTIONS (1)
  - Enterococcal infection [Recovered/Resolved]

NARRATIVE: CASE EVENT DATE: 20240512
